FAERS Safety Report 5735610-2 (Version None)
Quarter: 2008Q2

REPORT INFORMATION
  Report Type: 
  Country: None (occurrence: None)
  Receive Date: 20080508
  Receipt Date: 20080429
  Transmission Date: 20081010
  Serious: Yes (Other)
  Sender: FDA-Public Use
  Company Number: 2008010860

PATIENT
  Sex: Female

DRUGS (2)
  1. NICORETTE [Suspect]
     Dosage: TRANSDERMAL
     Route: 062
  2. NICORETTE [Suspect]
     Dosage: 15 MG, TRANSDERMAL
     Route: 062

REACTIONS (1)
  - DEPRESSION [None]
